FAERS Safety Report 8541732-3 (Version None)
Quarter: 2012Q3

REPORT INFORMATION
  Report Type: 
  Country: None (occurrence: None)
  Receive Date: 20120726
  Receipt Date: 20110923
  Transmission Date: 20120928
  Serious: No
  Sender: FDA-Public Use
  Company Number: US-ASTRAZENECA-2011SE57380

PATIENT
  Age: 43 Year
  Sex: Male
  Weight: 86.2 kg

DRUGS (1)
  1. SEROQUEL [Suspect]
     Route: 048
     Dates: start: 20080101

REACTIONS (6)
  - VISUAL IMPAIRMENT [None]
  - WEIGHT INCREASED [None]
  - ABDOMINAL DISCOMFORT [None]
  - MALAISE [None]
  - DIABETES MELLITUS [None]
  - BLOOD CHOLESTEROL INCREASED [None]
